FAERS Safety Report 21768251 (Version 1)
Quarter: 2022Q4

REPORT INFORMATION
  Report Type: Spontaneous
  Country: FR (occurrence: FR)
  Receive Date: 20221222
  Receipt Date: 20221222
  Transmission Date: 20230112
  Serious: Yes (Death)
  Sender: FDA-Public Use
  Company Number: FR-BAXTER-2022BAX026251

PATIENT
  Age: 58 Year
  Sex: Male

DRUGS (3)
  1. BORTEZOMIB [Suspect]
     Active Substance: BORTEZOMIB
     Indication: Product used for unknown indication
     Dosage: 2.5 MG/DOSE 2 DOSE(S)/WEEK 2 WEEK(S)/CYCLE, TREATMENT LINE 1, DURATION 0.3 MONTHS
     Route: 042
  2. DEXAMETHASONE [Suspect]
     Active Substance: DEXAMETHASONE
     Indication: Product used for unknown indication
     Dosage: 20 MG/DOSE 4 DOSE(S)/WEEK 2 WEEK(S)/CYCLE, TREATMENT LINE 1, DURATION 0.3 MONTHS
  3. CYCLOPHOSPHAMIDE [Suspect]
     Active Substance: CYCLOPHOSPHAMIDE
     Indication: Product used for unknown indication
     Dosage: 1480 MG/DOSE 1 DOSE(S)/WEEK 2 WEEK(S)/CYCLE, TREATMENT LINE 1, DURATION 0.3 MONTHS

REACTIONS (2)
  - Death [Fatal]
  - General physical condition abnormal [None]

NARRATIVE: CASE EVENT DATE: 20210108
